FAERS Safety Report 10498050 (Version 2)
Quarter: 2014Q4

REPORT INFORMATION
  Report Type: Spontaneous
  Country: GB (occurrence: GB)
  Receive Date: 20141006
  Receipt Date: 20141021
  Transmission Date: 20150528
  Serious: Yes (Other)
  Sender: FDA-Public Use
  Company Number: GB-BAYER-2014-145495

PATIENT
  Sex: Female

DRUGS (1)
  1. MIRENA [Suspect]
     Active Substance: LEVONORGESTREL
     Indication: ENDOMETRIAL HYPERPLASIA
     Dosage: 20 MCG/24HR, CONT
     Route: 015

REACTIONS (8)
  - Amnesia [None]
  - Back pain [None]
  - Arthralgia [None]
  - Myalgia [None]
  - Fatigue [None]
  - Headache [None]
  - Chemical poisoning [None]
  - Mental impairment [None]
